FAERS Safety Report 7397980-1 (Version None)
Quarter: 2011Q2

REPORT INFORMATION
  Report Type: 
  Country: None (occurrence: None)
  Receive Date: 20110406
  Receipt Date: 20110330
  Transmission Date: 20111010
  Serious: Yes (Death, Life-Threatening, Hospitalization)
  Sender: FDA-Public Use
  Company Number: GXKR2011DE01358

PATIENT
  Age: 90 Year
  Sex: Female

DRUGS (10)
  1. METOPROLOL [Suspect]
     Dosage: 50 MG/DAILY
     Route: 048
     Dates: start: 20100409, end: 20100418
  2. METOPROLOL [Suspect]
     Dosage: 100 MG/DAILY
     Route: 048
     Dates: end: 20100408
  3. DOMINAL ^ASTA^ [Suspect]
     Dosage: 80 MG/DAILY
     Route: 048
     Dates: start: 20100412, end: 20100420
  4. XIPAMIDE [Concomitant]
     Dosage: 15 MG/DAILY
     Route: 048
     Dates: start: 20100409
  5. XIPAMIDE [Concomitant]
     Dosage: 15 MG/DAILY
     Route: 048
     Dates: start: 20100413, end: 20100418
  6. JONOSTERIL [Concomitant]
     Dosage: 1000 MG/DAILY
     Route: 042
     Dates: start: 20100410, end: 20100420
  7. METOPROLOL [Suspect]
     Dosage: 25 MG/DAILY
     Route: 048
     Dates: start: 20100419, end: 20100420
  8. ALLOPURINOL [Concomitant]
     Dosage: 300 MG/DAILY
     Route: 048
  9. DOMINAL ^ASTA^ [Suspect]
     Dosage: 40 MG/DAILY
     Route: 048
     Dates: start: 20100409, end: 20100411
  10. XIPAMIDE [Concomitant]
     Dosage: 5 MG/DAILY
     Route: 048
     Dates: start: 20100419, end: 20100420

REACTIONS (2)
  - SUDDEN DEATH [None]
  - ELECTROCARDIOGRAM QT PROLONGED [None]
